FAERS Safety Report 9163083 (Version 2)
Quarter: 2013Q1

REPORT INFORMATION
  Report Type: Spontaneous
  Country: GB (occurrence: None)
  Receive Date: 20130227
  Receipt Date: 20130327
  Transmission Date: 20140127
  Serious: Yes (Congenital Anomaly, Other)
  Sender: FDA-Public Use
  Company Number: AUR-APL-2013-01646

PATIENT
  Age: 21 Week
  Sex: 0

DRUGS (3)
  1. NEVIRAPINE [Suspect]
     Indication: HIV INFECTION
     Dosage: (400 MG, 1 IN 1)
     Route: 064
     Dates: start: 20060302
  2. TRUVADA [Suspect]
     Indication: HIV INFECTION
     Dosage: 1 DOSAGE FORMS (1 DOSAGE FORMS, 1 IN D),
     Route: 064
     Dates: start: 20090901
  3. ENGERIX B (HEPATITIS B BACCINE) [Concomitant]

REACTIONS (3)
  - Maternal drugs affecting foetus [None]
  - Spina bifida [None]
  - Abortion induced [None]
